FAERS Safety Report 17561073 (Version 12)
Quarter: 2021Q1

REPORT INFORMATION
  Report Type: Report from Study
  Country: US (occurrence: US)
  Receive Date: 20200319
  Receipt Date: 20210325
  Transmission Date: 20210419
  Serious: Yes (Hospitalization)
  Sender: FDA-Public Use
  Company Number: NVSC2020US079143

PATIENT
  Age: 64 Year
  Sex: Female

DRUGS (4)
  1. MAYZENT [Suspect]
     Active Substance: SIPONIMOD
     Indication: MULTIPLE SCLEROSIS
     Dosage: UNK
     Route: 065
  2. MAYZENT [Suspect]
     Active Substance: SIPONIMOD
     Dosage: 2 MG
     Route: 065
  3. MAYZENT [Suspect]
     Active Substance: SIPONIMOD
     Dosage: 2 MG, QD
     Route: 048
  4. MAYZENT [Suspect]
     Active Substance: SIPONIMOD
     Dosage: 1 DF, QD
     Route: 048

REACTIONS (15)
  - Constipation [Unknown]
  - Post procedural complication [Unknown]
  - Musculoskeletal stiffness [Unknown]
  - Mania [Unknown]
  - Gait disturbance [Unknown]
  - Arthritis [Unknown]
  - Abdominal pain [Unknown]
  - Hypokinesia [Unknown]
  - Gait inability [Unknown]
  - Chest pain [Unknown]
  - Cyst [Unknown]
  - Tremor [Unknown]
  - Intestinal perforation [Unknown]
  - Fall [Unknown]
  - Illness [Unknown]

NARRATIVE: CASE EVENT DATE: 20201224
